APPROVED DRUG PRODUCT: APRESOLINE-ESIDRIX
Active Ingredient: HYDRALAZINE HYDROCHLORIDE; HYDROCHLOROTHIAZIDE
Strength: 25MG;15MG
Dosage Form/Route: TABLET;ORAL
Application: N012026 | Product #002
Applicant: NOVARTIS PHARMACEUTICALS CORP
Approved: Approved Prior to Jan 1, 1982 | RLD: No | RS: No | Type: DISCN